FAERS Safety Report 6737888-5 (Version None)
Quarter: 2010Q2

REPORT INFORMATION
  Report Type: 
  Country: None (occurrence: None)
  Receive Date: 20100524
  Receipt Date: 20100517
  Transmission Date: 20101027
  Serious: Yes (Hospitalization)
  Sender: FDA-Public Use
  Company Number: JP-B.I. PHARMACEUTICALS,INC./RIDGEFIELD-2009-BP-04901NB

PATIENT
  Sex: Male
  Weight: 58.3 kg

DRUGS (41)
  1. MICARDIS [Suspect]
     Indication: HYPERTENSION
     Dosage: 40 MG
     Route: 048
     Dates: end: 20081031
  2. ATELEC [Concomitant]
     Dosage: 20 MG
     Route: 048
  3. STOMILASE [Concomitant]
     Route: 048
     Dates: end: 20080728
  4. MAGNESIUM OXIDE [Concomitant]
     Route: 048
  5. MAINTATE [Concomitant]
     Dosage: 2.5 MG
     Route: 048
  6. DEPAS [Concomitant]
     Route: 048
     Dates: end: 20080728
  7. MYSLEE [Concomitant]
     Dosage: 10 MG
     Route: 048
     Dates: start: 20080723
  8. TANNALBIN [Concomitant]
     Route: 048
     Dates: start: 20071203, end: 20071208
  9. BIOFERMIN [Concomitant]
     Route: 048
     Dates: start: 20071203, end: 20071208
  10. CEREKINON [Concomitant]
     Route: 048
     Dates: start: 20071203, end: 20071208
  11. SOLANAX [Concomitant]
     Dosage: 0.4 MG
     Route: 048
     Dates: start: 20080429
  12. CONSTAN [Concomitant]
     Dosage: 0.4 MG
     Route: 048
     Dates: start: 20080428
  13. CONSTAN [Concomitant]
     Dosage: 0.4 MG
     Route: 048
     Dates: start: 20081008
  14. ASPIRIN [Concomitant]
     Dosage: 100 MG
     Route: 048
     Dates: start: 20080723
  15. CRAVIT [Concomitant]
     Dosage: 100 MG
     Route: 048
     Dates: start: 20080725, end: 20080728
  16. SLOW-K [Concomitant]
     Dosage: 600 MG
     Route: 048
     Dates: start: 20080725, end: 20080731
  17. LOPEMIN [Concomitant]
     Dosage: 1 MG
     Route: 048
     Dates: start: 20080725
  18. PROTECADIN [Concomitant]
     Dosage: 10 MG
     Route: 048
     Dates: start: 20080725, end: 20080731
  19. BETAMAC [Concomitant]
     Dosage: 50 MG
     Route: 048
     Dates: start: 20080729, end: 20080812
  20. ISALON [Concomitant]
     Dosage: 100 MG
     Route: 048
     Dates: start: 20080729
  21. CYANOCOBALAMIN [Concomitant]
     Dosage: 500 MG
     Route: 048
     Dates: start: 20080811, end: 20080922
  22. YOKU-KAN-SAN-KA-CHIMPI-HANGE [Concomitant]
     Dosage: 5 G
     Route: 048
     Dates: start: 20080820, end: 20080919
  23. PAXIL [Concomitant]
     Dosage: 10 MG
     Route: 048
     Dates: start: 20080912, end: 20080919
  24. TOLEDOMIN [Concomitant]
     Dosage: 15 MG
     Route: 048
     Dates: start: 20080916, end: 20080923
  25. LENDORMIN [Concomitant]
     Dosage: 0.25 MG
     Route: 048
     Dates: start: 20080916, end: 20080926
  26. FAMOTIDINE [Concomitant]
     Dosage: 10 MG
     Route: 048
     Dates: start: 20080917
  27. ROHYPNOL [Concomitant]
     Dosage: 1 MG
     Route: 048
     Dates: start: 20080926, end: 20081016
  28. ZOLOFT [Concomitant]
     Dosage: 25 MG
     Route: 048
     Dates: start: 20081003
  29. GASCON [Concomitant]
     Dosage: 80 MG
     Route: 048
     Dates: start: 20081004, end: 20081007
  30. EVAMYL [Concomitant]
     Dosage: 1 MG
     Route: 048
     Dates: start: 20081008
  31. SEROQUEL [Concomitant]
     Dosage: 100 MG
     Route: 048
     Dates: start: 20081014, end: 20081030
  32. SILECE [Concomitant]
     Dosage: 2 MG
     Route: 048
     Dates: start: 20081014
  33. LAXOBERON [Concomitant]
     Route: 048
     Dates: start: 20081017
  34. DESYREL [Concomitant]
     Dosage: 25 MG
     Route: 048
     Dates: start: 20081027
  35. AMOBAN [Concomitant]
     Dosage: 5 MG
     Route: 048
     Dates: start: 20081103
  36. POSTERISAN [Concomitant]
     Dosage: 1DF
     Route: 062
     Dates: start: 20081110
  37. DORAL [Concomitant]
     Dosage: 15 MG
     Route: 048
     Dates: start: 20081106
  38. ZYPREXA [Concomitant]
     Dosage: 5 MG
     Route: 048
     Dates: start: 20081113, end: 20081120
  39. BENZALIN [Concomitant]
     Dosage: 5 MG
     Route: 048
     Dates: start: 20080917
  40. SOLANAX [Concomitant]
     Dosage: 0.4 MG
     Route: 048
     Dates: start: 20080729, end: 20080919
  41. BORRAZA-G [Concomitant]
     Dosage: 1 DF
     Route: 048
     Dates: start: 20080912

REACTIONS (6)
  - BOWEL MOVEMENT IRREGULARITY [None]
  - HYPONATRAEMIA [None]
  - INSOMNIA [None]
  - NEUROSIS [None]
  - RENIN INCREASED [None]
  - SUICIDAL IDEATION [None]
